FAERS Safety Report 6882624-5 (Version None)
Quarter: 2010Q3

REPORT INFORMATION
  Report Type: 
  Country: None (occurrence: None)
  Receive Date: 20100701
  Receipt Date: 20090616
  Transmission Date: 20110219
  Serious: Yes (Hospitalization, Other)
  Sender: FDA-Public Use
  Company Number: 198516USA

PATIENT
  Sex: Female

DRUGS (1)
  1. SEASONIQUE [Suspect]

REACTIONS (1)
  - PULMONARY EMBOLISM [None]
